FAERS Safety Report 12854130 (Version 5)
Quarter: 2017Q1

REPORT INFORMATION
  Report Type: Spontaneous
  Country: US (occurrence: US)
  Receive Date: 20161017
  Receipt Date: 20170118
  Transmission Date: 20170428
  Serious: No
  Sender: FDA-Public Use
  Company Number: US-PFIZER INC-2016355468

PATIENT
  Age: 46 Year
  Sex: Female
  Weight: 89.81 kg

DRUGS (21)
  1. LYRICA [Suspect]
     Active Substance: PREGABALIN
     Indication: NERVE INJURY
  2. TYLENOL [Concomitant]
     Active Substance: ACETAMINOPHEN
     Indication: CERVICAL RADICULOPATHY
  3. LYRICA [Suspect]
     Active Substance: PREGABALIN
     Indication: NEURALGIA
  4. LYRICA [Suspect]
     Active Substance: PREGABALIN
     Indication: FIBROMYALGIA
  5. ALPRAZOLAM. [Concomitant]
     Active Substance: ALPRAZOLAM
     Indication: ANXIETY
     Dosage: 0.25 TABLET 1 TABLET TWICE A DAY
  6. LYRICA [Suspect]
     Active Substance: PREGABALIN
     Indication: MYELOPATHY
     Dosage: 75 MG, 3X/DAY
     Route: 048
     Dates: start: 20160926
  7. LYRICA [Suspect]
     Active Substance: PREGABALIN
     Indication: RADICULOPATHY
  8. COCONUT OIL [Concomitant]
     Active Substance: COCONUT OIL
     Dosage: 1000 MG CAPSULE 1-2 CAPSULE WITH FOOD ONCE A DAY
  9. TYLENOL [Concomitant]
     Active Substance: ACETAMINOPHEN
     Indication: PAIN
  10. LYRICA [Suspect]
     Active Substance: PREGABALIN
     Indication: SPINAL OSTEOARTHRITIS
  11. TYLENOL [Concomitant]
     Active Substance: ACETAMINOPHEN
     Indication: SPINAL OSTEOARTHRITIS
     Dosage: 650 MG 1-2 TABLETS AS NEEDED, ORALLY, ONCE TO THREE TIMES A DAY
     Route: 048
  12. BUSPIRONE HCL [Concomitant]
     Active Substance: BUSPIRONE HYDROCHLORIDE
     Dosage: 15 MG TABLET 1 TABLET TWICE A DAY AS NEEDED
  13. LEVOTHYROXINE SODIUM. [Concomitant]
     Active Substance: LEVOTHYROXINE SODIUM
     Dosage: 25 UG, 1X/DAY (EMPTY STOMACH IN THE MORNING)
  14. VITAMIN D3 [Concomitant]
     Active Substance: CHOLECALCIFEROL
     Dosage: 5000 IU, 1X/DAY
  15. ECHINACEA [Concomitant]
     Active Substance: ECHINACEA, UNSPECIFIED
     Dosage: 400 MG CAPSULE 1-2 TABLETS ONCE A DAY
  16. TURMERIC CURCUMIN [Concomitant]
     Active Substance: TURMERIC
     Dosage: 500 MG, 1X/DAY
  17. MELATONIN [Concomitant]
     Active Substance: MELATONIN
     Dosage: 5 MG, AS NEEDED (1 TABLET AT BEDTIME AS NEEDED WITH FOOD ONCE A DAY)
  18. LYRICA [Suspect]
     Active Substance: PREGABALIN
     Indication: SPINAL OSTEOARTHRITIS
     Dosage: 75 MG, 2X/DAY
     Route: 048
     Dates: start: 2015
  19. L-LYSINE [Concomitant]
     Active Substance: LYSINE
     Dosage: 1000 MG, AS NEEDED (1-2 TABLETS ONCE A DAY AS NEEDED)
  20. MAGNESIUM [Concomitant]
     Active Substance: MAGNESIUM
     Dosage: 400 MG, 1-2 TABLETS ONCE A DAY
  21. FLEXERIL [Concomitant]
     Active Substance: CYCLOBENZAPRINE HYDROCHLORIDE
     Indication: MUSCLE SPASMS
     Dosage: 1/2-1 TABLET AS NEEDED, ORALLY, ONCE TO THREE TIMES A DAY
     Route: 048

REACTIONS (3)
  - Condition aggravated [Not Recovered/Not Resolved]
  - Pain [Not Recovered/Not Resolved]
  - Intentional product misuse [Unknown]

NARRATIVE: CASE EVENT DATE: 201609
